FAERS Safety Report 8958932 (Version 2)
Quarter: 2013Q1

REPORT INFORMATION
  Report Type: Spontaneous
  Country: US (occurrence: US)
  Receive Date: 20121212
  Receipt Date: 20130115
  Transmission Date: 20140127
  Serious: No
  Sender: FDA-Public Use
  Company Number: US-ASTELLAS-2012US012104

PATIENT
  Sex: Male
  Weight: 87 kg

DRUGS (3)
  1. VESICARE [Suspect]
     Indication: URINARY INCONTINENCE
     Dosage: 5 MG, UID/QD
     Route: 048
     Dates: start: 20090518
  2. VESICARE [Suspect]
     Dosage: 10 MG, UNKNOWN/D
     Route: 048
  3. LISINOPRIL [Concomitant]
     Indication: HYPERTENSION
     Dosage: UNK
     Route: 065

REACTIONS (1)
  - No adverse event [Unknown]
